FAERS Safety Report 23597016 (Version 1)
Quarter: 2024Q1

REPORT INFORMATION
  Report Type: Spontaneous
  Country: FR (occurrence: FR)
  Receive Date: 20240305
  Receipt Date: 20240305
  Transmission Date: 20240409
  Serious: Yes (Death, Other)
  Sender: FDA-Public Use
  Company Number: FR-B.Braun Medical Inc.-2154051

PATIENT
  Age: 57 Year
  Sex: Male

DRUGS (6)
  1. ACETAMINOPHEN [Suspect]
     Active Substance: ACETAMINOPHEN
     Dates: start: 20240125
  2. OXAZEPAM [Suspect]
     Active Substance: OXAZEPAM
  3. MORPHINE [Suspect]
     Active Substance: MORPHINE
  4. ZOLPIDEM [Suspect]
     Active Substance: ZOLPIDEM TARTRATE
  5. CODEINE [Suspect]
     Active Substance: CODEINE
  6. PAROXETINE [Suspect]
     Active Substance: PAROXETINE

REACTIONS (4)
  - Asphyxia [Fatal]
  - Drug abuse [Fatal]
  - Toxicity to various agents [Fatal]
  - Poisoning [Fatal]
